FAERS Safety Report 11696079 (Version 1)
Quarter: 2015Q4

REPORT INFORMATION
  Report Type: Spontaneous
  Country: US (occurrence: None)
  Receive Date: 20151103
  Receipt Date: 20151103
  Transmission Date: 20160304
  Serious: Yes (Hospitalization, Other)
  Sender: FDA-Public Use
  Company Number: None

PATIENT
  Age: 56 Year
  Sex: Female
  Weight: 59.88 kg

DRUGS (9)
  1. CLINDAMYCIN PHOSPHATE LOTION TOPICAL SUSPENSION USP, 1% [Suspect]
     Active Substance: CLINDAMYCIN PHOSPHATE
     Indication: SEBORRHOEIC DERMATITIS
     Dosage: APPLY THIN FILM, ONCE DAILY EVERY EVENING, ON THE SKIN
     Route: 061
     Dates: start: 20150601, end: 20150612
  2. DORYX [Concomitant]
     Active Substance: DOXYCYCLINE HYCLATE
  3. CLINDAMYCIN PHOSPHATE LOTION TOPICAL SUSPENSION USP, 1% [Suspect]
     Active Substance: CLINDAMYCIN PHOSPHATE
     Indication: SKIN DISORDER
     Dosage: APPLY THIN FILM, ONCE DAILY EVERY EVENING, ON THE SKIN
     Route: 061
     Dates: start: 20150601, end: 20150612
  4. CLINDAMYCIN PHOSPHATE LOTION TOPICAL SUSPENSION USP, 1% [Suspect]
     Active Substance: CLINDAMYCIN PHOSPHATE
     Indication: DERMATITIS CONTACT
     Dosage: APPLY THIN FILM, ONCE DAILY EVERY EVENING, ON THE SKIN
     Route: 061
     Dates: start: 20150601, end: 20150612
  5. CLINDAMYCIN PHOSPHATE LOTION TOPICAL SUSPENSION USP, 1% [Suspect]
     Active Substance: CLINDAMYCIN PHOSPHATE
     Indication: ACNE
     Dosage: APPLY THIN FILM, ONCE DAILY EVERY EVENING, ON THE SKIN
     Route: 061
     Dates: start: 20150601, end: 20150612
  6. CLINDAMYCIN PHOSPHATE LOTION TOPICAL SUSPENSION USP, 1% [Suspect]
     Active Substance: CLINDAMYCIN PHOSPHATE
     Indication: ROSACEA
     Dosage: APPLY THIN FILM, ONCE DAILY EVERY EVENING, ON THE SKIN
     Route: 061
     Dates: start: 20150601, end: 20150612
  7. SYNTHROID [Concomitant]
     Active Substance: LEVOTHYROXINE SODIUM
  8. BAYER LOW DOSE ASPIRIN ORANGE [Concomitant]
  9. FLUTICASONE PROPIONATE. [Concomitant]
     Active Substance: FLUTICASONE PROPIONATE

REACTIONS (16)
  - Chest pain [None]
  - Gastrointestinal disorder [None]
  - Mucous stools [None]
  - Dilated pores [None]
  - Constipation [None]
  - Pain [None]
  - Application site erosion [None]
  - Application site pain [None]
  - Bone pain [None]
  - Haematochezia [None]
  - Diarrhoea [None]
  - Application site fissure [None]
  - Urinary incontinence [None]
  - Throat irritation [None]
  - Application site discolouration [None]
  - Secretion discharge [None]

NARRATIVE: CASE EVENT DATE: 20150606
